FAERS Safety Report 6723308-3 (Version None)
Quarter: 2010Q2

REPORT INFORMATION
  Report Type: 
  Country: None (occurrence: None)
  Receive Date: 20100511
  Receipt Date: 20100426
  Transmission Date: 20101027
  Serious: Yes (Other)
  Sender: FDA-Public Use
  Company Number: 578563

PATIENT
  Age: 76 Year
  Sex: Male

DRUGS (5)
  1. METHOTREXATE [Suspect]
     Dosage: 5 MG MILLIGRAM(S), WEEK,
     Dates: start: 20100401, end: 20100422
  2. (ENANTONE LP) [Concomitant]
  3. (PARIET) [Concomitant]
  4. (DELTACORTENE) [Concomitant]
  5. NORVASC [Concomitant]

REACTIONS (7)
  - DYSARTHRIA [None]
  - EPISTAXIS [None]
  - FACE OEDEMA [None]
  - LIP OEDEMA [None]
  - OEDEMA [None]
  - PANCYTOPENIA [None]
  - RENAL FAILURE [None]
